FAERS Safety Report 12874102 (Version 1)
Quarter: 2016Q4

REPORT INFORMATION
  Report Type: Spontaneous
  Country: HR (occurrence: HR)
  Receive Date: 20161021
  Receipt Date: 20161021
  Transmission Date: 20170207
  Serious: Yes (Other)
  Sender: FDA-Public Use
  Company Number: HR-TEVA-701935ACC

PATIENT
  Age: 72 Year
  Sex: Male
  Weight: 90 kg

DRUGS (5)
  1. RHINOCORT AQUA [Concomitant]
     Active Substance: BUDESONIDE
     Indication: ACUTE SINUSITIS
     Route: 055
  2. BAZETHAM [Suspect]
     Active Substance: TAMSULOSIN
     Indication: BENIGN PROSTATIC HYPERPLASIA
     Dosage: .4 MILLIGRAM DAILY;
     Route: 048
     Dates: start: 20160909, end: 20160914
  3. HELEX [Concomitant]
     Active Substance: ALPRAZOLAM
     Indication: PHOBIA
     Dosage: .5 MILLIGRAM DAILY;
     Route: 048
  4. TERTENSIF SR [Concomitant]
     Indication: CEREBRAL INFARCTION
     Dosage: 1.5 MILLIGRAM DAILY;
     Route: 048
  5. LUMIDOL [Concomitant]
     Indication: BACK PAIN
     Dosage: 100 MILLIGRAM DAILY;
     Route: 041

REACTIONS (3)
  - Nausea [Recovered/Resolved]
  - Vomiting [Recovered/Resolved]
  - Urinary retention [Recovered/Resolved]

NARRATIVE: CASE EVENT DATE: 20160909
